FAERS Safety Report 25942001 (Version 1)
Quarter: 2025Q4

REPORT INFORMATION
  Report Type: Spontaneous
  Country: US (occurrence: US)
  Receive Date: 20251020
  Receipt Date: 20251020
  Transmission Date: 20260118
  Serious: No
  Sender: DR REDDYS
  Company Number: US-DRL-USA-USA/2025/10/015488

PATIENT
  Age: 51 Year
  Sex: Female
  Weight: 81.6 kg

DRUGS (1)
  1. LIOTHYRONINE SODIUM [Suspect]
     Active Substance: LIOTHYRONINE SODIUM
     Indication: Product used for unknown indication
     Dates: start: 202501

REACTIONS (4)
  - Malaise [Unknown]
  - Fatigue [Unknown]
  - Brain fog [Unknown]
  - Product quality issue [Unknown]
